FAERS Safety Report 17138767 (Version 1)
Quarter: 2019Q4

REPORT INFORMATION
  Report Type: Spontaneous
  Country: US (occurrence: US)
  Receive Date: 20191210
  Receipt Date: 20191210
  Transmission Date: 20200122
  Serious: Yes (Hospitalization, Other)
  Sender: FDA-Public Use
  Company Number: None

PATIENT
  Age: 58 Year
  Sex: Female

DRUGS (2)
  1. RINVOQ 15 MG ER TABLET [Concomitant]
  2. HUMIRA [Suspect]
     Active Substance: ADALIMUMAB
     Dates: start: 20190314

REACTIONS (2)
  - Procedural intestinal perforation [None]
  - Infection [None]

NARRATIVE: CASE EVENT DATE: 20191209
